FAERS Safety Report 15980074 (Version 2)
Quarter: 2019Q1

REPORT INFORMATION
  Report Type: Spontaneous
  Country: SK (occurrence: SK)
  Receive Date: 20190219
  Receipt Date: 20190315
  Transmission Date: 20190418
  Serious: Yes (Other)
  Sender: FDA-Public Use
  Company Number: SK-CELLTRION INC.-2019SK018666

PATIENT

DRUGS (1)
  1. INFLIXIMAB (UNKNOWN) [Suspect]
     Active Substance: INFLIXIMAB
     Indication: HIDRADENITIS
     Dosage: UNK
     Route: 065

REACTIONS (4)
  - Vasculitis necrotising [Unknown]
  - Hypersensitivity vasculitis [Unknown]
  - Skin ulcer [Unknown]
  - Drug ineffective for unapproved indication [Unknown]
